FAERS Safety Report 10977585 (Version 1)
Quarter: 2015Q1

REPORT INFORMATION
  Report Type: Spontaneous
  Country: US (occurrence: None)
  Receive Date: 20150330
  Receipt Date: 20150330
  Transmission Date: 20150721
  Serious: Yes (Hospitalization)
  Sender: FDA-Public Use
  Company Number: 2797903

PATIENT
  Age: 49 Year
  Sex: Male

DRUGS (2)
  1. EPINEPHRINE. [Suspect]
     Active Substance: EPINEPHRINE
     Indication: BRADYCARDIA
     Route: 040
  2. ATROPINE [Concomitant]
     Active Substance: ATROPINE

REACTIONS (7)
  - Overdose [None]
  - Sinus tachycardia [None]
  - Stress cardiomyopathy [None]
  - Heart rate increased [None]
  - Cardiotoxicity [None]
  - Bundle branch block left [None]
  - Ventricular tachycardia [None]
